FAERS Safety Report 9464963 (Version 1)
Quarter: 2013Q3

REPORT INFORMATION
  Report Type: Spontaneous
  Country: FR (occurrence: FR)
  Receive Date: 20130819
  Receipt Date: 20130819
  Transmission Date: 20140515
  Serious: Yes (Other)
  Sender: FDA-Public Use
  Company Number: FR-MYLANLABS-2013S1017440

PATIENT
  Age: 18 Year
  Sex: Female

DRUGS (11)
  1. METHOTREXATE [Suspect]
     Indication: ACUTE LYMPHOCYTIC LEUKAEMIA
     Route: 042
     Dates: start: 20130603, end: 20130603
  2. METHOTREXATE [Suspect]
     Indication: ACUTE LYMPHOCYTIC LEUKAEMIA
     Route: 037
     Dates: start: 20130604, end: 20130604
  3. PURINETHOL [Suspect]
     Route: 048
  4. VINCRISTINE [Suspect]
     Route: 042
     Dates: start: 20130603, end: 20130603
  5. ARACYTINE [Suspect]
     Route: 037
     Dates: start: 20130604, end: 20130604
  6. FOLINIC ACID [Suspect]
     Route: 042
     Dates: start: 20130604
  7. DEPO-MEDROL [Suspect]
     Route: 037
     Dates: start: 20130604, end: 20130604
  8. VANCOMYCIN [Suspect]
     Indication: INFECTION
     Dates: start: 20130612, end: 20130616
  9. TAZOCILLINE [Suspect]
     Indication: INFECTION
     Dates: start: 20130612, end: 20130615
  10. RENITEC [Concomitant]
     Route: 048
     Dates: start: 201304
  11. XANAX [Concomitant]
     Route: 048
     Dates: start: 201304

REACTIONS (6)
  - Renal failure acute [Recovered/Resolved]
  - Overdose [Recovered/Resolved]
  - Dermatitis exfoliative [Not Recovered/Not Resolved]
  - Dermatitis bullous [Not Recovered/Not Resolved]
  - Aplasia [Not Recovered/Not Resolved]
  - Mucosal inflammation [Not Recovered/Not Resolved]
